FAERS Safety Report 24084856 (Version 2)
Quarter: 2024Q3

REPORT INFORMATION
  Report Type: Spontaneous
  Country: DE (occurrence: DE)
  Receive Date: 20240712
  Receipt Date: 20240725
  Transmission Date: 20241016
  Serious: Yes (Hospitalization, Other)
  Sender: EXELIXIS
  Company Number: DE-IPSEN Group, Research and Development-2024-13274

PATIENT
  Age: 67 Year
  Sex: Male
  Weight: 90 kg

DRUGS (9)
  1. CABOMETYX [Suspect]
     Active Substance: CABOZANTINIB S-MALATE
     Indication: Metastatic renal cell carcinoma
     Route: 065
     Dates: end: 202211
  2. CABOMETYX [Suspect]
     Active Substance: CABOZANTINIB S-MALATE
     Dosage: 20 MG
     Route: 065
     Dates: start: 202301
  3. CABOMETYX [Suspect]
     Active Substance: CABOZANTINIB S-MALATE
     Route: 065
  4. CABOMETYX [Suspect]
     Active Substance: CABOZANTINIB S-MALATE
     Dosage: 20 MG
     Route: 065
  5. CABOMETYX [Suspect]
     Active Substance: CABOZANTINIB S-MALATE
     Dosage: 20 MG AND 40 MG ALTERNATELY
     Route: 065
  6. NIVOLUMAB [Suspect]
     Active Substance: NIVOLUMAB
     Indication: Metastatic renal cell carcinoma
     Dosage: UNK
  7. NIVOLUMAB [Suspect]
     Active Substance: NIVOLUMAB
     Dosage: UNK
  8. DENOSUMAB [Concomitant]
     Active Substance: DENOSUMAB
     Indication: Prophylaxis
     Dates: end: 202211
  9. PREDNISOLONE [Concomitant]
     Active Substance: PREDNISOLONE
     Dosage: 5, 20 1-0-1, 10 MG 1-0-0

REACTIONS (13)
  - Osteonecrosis [Unknown]
  - Pneumonitis [Unknown]
  - Pulmonary embolism [Unknown]
  - Metastases to lymph nodes [Unknown]
  - General physical health deterioration [Unknown]
  - Fibrosis [Unknown]
  - Thyroiditis [Unknown]
  - Pulmonary function test decreased [Unknown]
  - Dyspnoea exertional [Unknown]
  - Hypertension [Unknown]
  - Diarrhoea [Unknown]
  - Weight decreased [Unknown]
  - Off label use [Unknown]

NARRATIVE: CASE EVENT DATE: 20221101
